FAERS Safety Report 14856577 (Version 1)
Quarter: 2018Q2

REPORT INFORMATION
  Report Type: Spontaneous
  Country: US (occurrence: US)
  Receive Date: 20180507
  Receipt Date: 20180507
  Transmission Date: 20180711
  Serious: No
  Sender: FDA-Public Use
  Company Number: US-ROCHE-2008225

PATIENT
  Sex: Female

DRUGS (2)
  1. ESBRIET [Suspect]
     Active Substance: PIRFENIDONE
     Indication: IDIOPATHIC PULMONARY FIBROSIS
     Dosage: WITH FOOD
     Route: 048
     Dates: start: 20170829
  2. METOPROLOL SUCCINATE. [Concomitant]
     Active Substance: METOPROLOL SUCCINATE
     Dosage: ER
     Route: 065

REACTIONS (3)
  - Feeling abnormal [Unknown]
  - Dizziness [Not Recovered/Not Resolved]
  - Dizziness [Unknown]
